FAERS Safety Report 19028299 (Version 1)
Quarter: 2021Q1

REPORT INFORMATION
  Report Type: Report from Study
  Country: CN (occurrence: CN)
  Receive Date: 20210318
  Receipt Date: 20210318
  Transmission Date: 20210420
  Serious: Yes (Life-Threatening)
  Sender: FDA-Public Use
  Company Number: CN-AGIOS-2102CN02508

PATIENT
  Age: 70 Year
  Sex: Female
  Weight: 70 kg

DRUGS (17)
  1. DEXAMETHASONE SODIUM PHOSPHATE. [Concomitant]
     Active Substance: DEXAMETHASONE SODIUM PHOSPHATE
     Dosage: UNK
     Route: 065
     Dates: start: 20201204, end: 20201216
  2. LEVOFLOXACIN;SODIUM CHLORIDE [Concomitant]
     Dosage: UNK
     Route: 065
     Dates: start: 20201212, end: 20201217
  3. MECOBALAMIN [Concomitant]
     Active Substance: METHYLCOBALAMIN
     Dosage: UNK
     Route: 065
     Dates: start: 20201214, end: 20201217
  4. MEDILAC?S [Concomitant]
     Dosage: UNK
     Route: 065
     Dates: start: 20201215, end: 20210105
  5. GLYCEROL W/IODINE [Concomitant]
     Dosage: UNK
     Route: 065
     Dates: start: 20201125
  6. LANSOPRAZOLE. [Concomitant]
     Active Substance: LANSOPRAZOLE
     Dosage: UNK
     Route: 065
     Dates: start: 20201211, end: 20201217
  7. HYDROXYCARBAMIDE [Concomitant]
     Active Substance: HYDROXYUREA
     Dosage: UNK
     Route: 065
     Dates: start: 20201129, end: 20201208
  8. NORADRENALINE                      /00127501/ [Concomitant]
     Active Substance: NOREPINEPHRINE
     Dosage: UNK
     Route: 065
     Dates: start: 20201212, end: 20201212
  9. IBUPROFEN. [Concomitant]
     Active Substance: IBUPROFEN
     Dosage: UNK
     Route: 065
     Dates: start: 20201112, end: 20210301
  10. BATROXOBIN [Concomitant]
     Active Substance: BATROXOBIN
     Dosage: UNK
     Route: 065
     Dates: start: 20201210, end: 20201217
  11. IVOSIDENIB AML [Suspect]
     Active Substance: IVOSIDENIB
     Indication: ACUTE MYELOID LEUKAEMIA
     Dosage: 500 MILLIGRAM, QD
     Route: 048
     Dates: start: 20201103, end: 20210222
  12. BERBERINE HYDROCHLORIDE [Concomitant]
     Active Substance: BERBERINE
     Dosage: UNK
     Route: 065
     Dates: start: 20201216, end: 20201223
  13. ETAMSYLATE [Concomitant]
     Active Substance: ETHAMSYLATE
     Dosage: UNK
     Route: 065
     Dates: start: 20201129, end: 20201225
  14. CEFOPERAZONE SODIUM AND SULBACTAM SODIUM [Concomitant]
     Active Substance: CEFOPERAZONE SODIUM\SULBACTAM SODIUM
     Dosage: UNK
     Route: 065
     Dates: start: 20201130, end: 20201207
  15. GLYCEROL W/PHENOL/SODIUM BICARBONATE/SODIUM B [Concomitant]
     Dosage: UNK
     Route: 065
     Dates: start: 20201206
  16. CEFIXIME. [Concomitant]
     Active Substance: CEFIXIME
     Dosage: UNK
     Route: 065
     Dates: start: 20201206, end: 20201217
  17. CARBAZOCHROME SODIUM SULFONATE [Concomitant]
     Active Substance: CARBAZOCHROME SODIUM SULFONATE
     Dosage: UNK
     Route: 065
     Dates: start: 20201212, end: 20210102

REACTIONS (1)
  - Differentiation syndrome [Recovered/Resolved]

NARRATIVE: CASE EVENT DATE: 20201217
